FAERS Safety Report 9201063 (Version 2)
Quarter: 2013Q2

REPORT INFORMATION
  Report Type: Report from Study
  Country: JP (occurrence: JP)
  Receive Date: 20130401
  Receipt Date: 20130522
  Transmission Date: 20140414
  Serious: Yes (Hospitalization, Other)
  Sender: FDA-Public Use
  Company Number: JP-BAYER-2013-036898

PATIENT
  Age: 65 Year
  Sex: Male
  Weight: 61 kg

DRUGS (8)
  1. NEXAVAR [Suspect]
     Indication: HEPATOCELLULAR CARCINOMA
     Dosage: 800 MG/DAY
     Route: 048
     Dates: start: 20120130, end: 20120302
  2. NEXAVAR [Suspect]
     Indication: HEPATOCELLULAR CARCINOMA
     Dosage: 400 MG/DAY
     Dates: start: 20120302, end: 20120316
  3. NEXIUM [Concomitant]
     Dosage: DAILY DOSE 10 MG
     Route: 048
  4. LASIX [Concomitant]
     Dosage: DAILY DOSE 20 MG
     Route: 048
  5. LASIX [Concomitant]
     Dosage: DAILY DOSE 20 MG
     Route: 042
     Dates: start: 20120321, end: 20120321
  6. ALDACTONE A [Concomitant]
     Dosage: DAILY DOSE 25 MG
     Route: 048
  7. LIVACT [Concomitant]
     Dosage: DAILY DOSE 3 DF
     Route: 048
  8. KERATINAMIN [Concomitant]
     Indication: PROPHYLAXIS
     Dosage: UNK
     Route: 061
     Dates: start: 20120127

REACTIONS (4)
  - Hepatic encephalopathy [Recovered/Resolved]
  - Ascites [Not Recovered/Not Resolved]
  - Dysphonia [Not Recovered/Not Resolved]
  - Hypertension [Recovering/Resolving]
